FAERS Safety Report 6814313-7 (Version None)
Quarter: 2010Q3

REPORT INFORMATION
  Report Type: 
  Country: None (occurrence: None)
  Receive Date: 20100702
  Receipt Date: 20100623
  Transmission Date: 20110219
  Serious: Yes (Hospitalization)
  Sender: FDA-Public Use
  Company Number: DE-JNJFOC-20100606920

PATIENT
  Age: 41 Year
  Sex: Male
  Weight: 102 kg

DRUGS (8)
  1. RISPERDAL CONSTA [Suspect]
     Indication: SCHIZOAFFECTIVE DISORDER
     Route: 030
  2. ENALAPRIL MALEATE [Suspect]
     Indication: HYPERTENSION
     Route: 048
  3. GASTROZEPIN [Concomitant]
     Indication: SALIVARY HYPERSECRETION
     Route: 048
  4. METOPROLOL SUCCINATE [Concomitant]
     Indication: HYPERTENSION
     Route: 048
  5. VALPROAT [Concomitant]
     Indication: SCHIZOAFFECTIVE DISORDER
     Route: 048
  6. CHLORPROTHIXENE [Concomitant]
     Indication: SCHIZOAFFECTIVE DISORDER
     Route: 048
  7. CLOZAPINE [Concomitant]
     Indication: SCHIZOAFFECTIVE DISORDER
     Route: 048
  8. LORAZEPAM [Concomitant]
     Indication: SCHIZOAFFECTIVE DISORDER
     Route: 048

REACTIONS (1)
  - HYPONATRAEMIA [None]
